FAERS Safety Report 5401325-3 (Version None)
Quarter: 2007Q3

REPORT INFORMATION
  Report Type: 
  Country: None (occurrence: None)
  Receive Date: 20070731
  Receipt Date: 20070725
  Transmission Date: 20080115
  Serious: Yes (Other)
  Sender: FDA-Public Use
  Company Number: TW-BRISTOL-MYERS SQUIBB COMPANY-13859806

PATIENT
  Age: 91 Year
  Sex: Female

DRUGS (1)
  1. CEFEPIME [Suspect]
     Indication: URINARY TRACT INFECTION

REACTIONS (3)
  - ALTERED STATE OF CONSCIOUSNESS [None]
  - ASTERIXIS [None]
  - EYE DISORDER [None]
